FAERS Safety Report 9466427 (Version 1)
Quarter: 2013Q3

REPORT INFORMATION
  Report Type: Report from Study
  Country: US (occurrence: US)
  Receive Date: 20130820
  Receipt Date: 20130820
  Transmission Date: 20140515
  Serious: Yes (Hospitalization)
  Sender: FDA-Public Use
  Company Number: US-ABBOTT-13P-163-1133014-00

PATIENT
  Age: 57 Year
  Sex: Male
  Weight: 99.88 kg

DRUGS (9)
  1. HUMIRA [Suspect]
     Indication: CROHN^S DISEASE
     Dosage: BASELINE
     Route: 058
     Dates: start: 20080625, end: 20080625
  2. HUMIRA [Suspect]
     Dosage: WEEK 2
     Route: 058
  3. HUMIRA [Suspect]
     Route: 058
  4. POTASSIUM CHLORIDE [Concomitant]
     Indication: MEDICAL DIET
     Dates: start: 2007
  5. LISINOPRIL [Concomitant]
     Indication: HYPERTENSION
     Dates: start: 2007
  6. IMODIUM [Concomitant]
     Indication: DIARRHOEA
     Dates: start: 1985
  7. TYLENOL [Concomitant]
     Indication: MYALGIA
     Dates: start: 1980
  8. BENADRYL [Concomitant]
     Indication: HYPERSENSITIVITY
     Dates: start: 1980
  9. NASCOBAL [Concomitant]
     Indication: VITAMIN B12 DEFICIENCY
     Dates: start: 2007

REACTIONS (1)
  - Small intestinal obstruction [Not Recovered/Not Resolved]
